FAERS Safety Report 9780985 (Version 1)
Quarter: 2013Q4

REPORT INFORMATION
  Report Type: Spontaneous
  Country: US (occurrence: None)
  Receive Date: 20131223
  Receipt Date: 20131223
  Transmission Date: 20140711
  Serious: Yes (Other)
  Sender: FDA-Public Use
  Company Number: None

PATIENT
  Age: 27 Year
  Sex: Female
  Weight: 54.43 kg

DRUGS (1)
  1. SERTRALINE 50MG CAMBER P [Suspect]
     Dosage: 1 TABLET
     Route: 048
     Dates: start: 20131128, end: 20131219

REACTIONS (7)
  - Panic attack [None]
  - Depression [None]
  - Dizziness [None]
  - Muscle twitching [None]
  - Fatigue [None]
  - Feeling abnormal [None]
  - Product substitution issue [None]
